FAERS Safety Report 6067196-X (Version None)
Quarter: 2009Q1

REPORT INFORMATION
  Report Type: 
  Country: None (occurrence: None)
  Receive Date: 20090205
  Receipt Date: 20090126
  Transmission Date: 20090719
  Serious: Yes (Other)
  Sender: FDA-Public Use
  Company Number: PHHY2009JP03090

PATIENT
  Sex: Male

DRUGS (7)
  1. ZOLEDRONIC ACID [Suspect]
     Indication: LUNG NEOPLASM MALIGNANT
     Dosage: 4MG (EVERY 4 WEEKS)
     Route: 042
     Dates: start: 20071102, end: 20080318
  2. OXYCONTIN [Concomitant]
     Dosage: 15MG
     Route: 048
     Dates: start: 20080304
  3. OXINORM [Concomitant]
     Dosage: UNK
     Route: 048
     Dates: start: 20080304
  4. NOVAMIN [Concomitant]
     Dosage: UNK
     Route: 048
     Dates: start: 20080304
  5. TAKEPRON [Concomitant]
     Dosage: UNK
     Route: 048
     Dates: start: 20080304
  6. LOXONIN [Concomitant]
     Dosage: UNK
     Route: 048
     Dates: start: 20080304
  7. MUCOSTA [Concomitant]
     Dosage: UNK
     Route: 048
     Dates: start: 20080304

REACTIONS (3)
  - BLOOD CREATININE DECREASED [None]
  - DENTAL CARE [None]
  - OSTEITIS [None]
